FAERS Safety Report 6158906-1 (Version None)
Quarter: 2009Q2

REPORT INFORMATION
  Report Type: 
  Country: None (occurrence: None)
  Receive Date: 20090415
  Receipt Date: 20090331
  Transmission Date: 20091009
  Serious: Yes (Death)
  Sender: FDA-Public Use
  Company Number: AE 2009-043

PATIENT
  Age: 45 Year
  Sex: Male

DRUGS (6)
  1. FAZACLO ODT [Suspect]
     Indication: SCHIZOAFFECTIVE DISORDER
     Dosage: 100 MG QHS PO
     Route: 048
     Dates: start: 20090305, end: 20090327
  2. DEPAKOTE ER [Concomitant]
  3. BACTRIM DS [Concomitant]
  4. AMBIEN [Concomitant]
  5. DOXEPINE [Concomitant]
  6. IMIPRAMINE [Concomitant]

REACTIONS (1)
  - PNEUMONIA [None]
